FAERS Safety Report 10469484 (Version 1)
Quarter: 2014Q3

REPORT INFORMATION
  Report Type: Spontaneous
  Country: CA (occurrence: None)
  Receive Date: 20140922
  Receipt Date: 20140922
  Transmission Date: 20150326
  Serious: Yes (Disabling)
  Sender: FDA-Public Use
  Company Number: None

PATIENT
  Age: 64 Year
  Sex: Female
  Weight: 104.33 kg

DRUGS (11)
  1. PARIET [Concomitant]
     Active Substance: RABEPRAZOLE SODIUM
  2. VITAMIN C [Concomitant]
     Active Substance: ASCORBIC ACID
  3. NUTRI FLEX [Concomitant]
  4. PREDNISONE. [Concomitant]
     Active Substance: PREDNISONE
  5. VITAMIN E [Concomitant]
     Active Substance: .ALPHA.-TOCOPHEROL
  6. BIOTIN [Concomitant]
     Active Substance: BIOTIN
  7. FOLIC ACID. [Concomitant]
     Active Substance: FOLIC ACID
  8. FLAXSEED [Concomitant]
     Active Substance: FLAX SEED
  9. VITAMIN D [Concomitant]
     Active Substance: CHOLECALCIFEROL
  10. PLAQUENIL [Suspect]
     Active Substance: HYDROXYCHLOROQUINE SULFATE
     Indication: ARTHRITIS
     Dosage: TABS 2 DAILY?TWICE DAILY?TAKEN BY MOUTH
     Route: 048
     Dates: start: 20140801, end: 20140814
  11. MULTIVITAMIN [Concomitant]
     Active Substance: VITAMINS

REACTIONS (1)
  - Stevens-Johnson syndrome [None]

NARRATIVE: CASE EVENT DATE: 20140814
